FAERS Safety Report 5710164-5 (Version None)
Quarter: 2008Q2

REPORT INFORMATION
  Report Type: 
  Country: None (occurrence: None)
  Receive Date: 20080418
  Receipt Date: 20080122
  Transmission Date: 20081010
  Serious: No
  Sender: FDA-Public Use
  Company Number: US-ASTRAZENECA-2008UW01526

PATIENT
  Age: 80 Year
  Sex: Male
  Weight: 86.2 kg

DRUGS (5)
  1. TOPROL-XL [Suspect]
     Indication: BLOOD PRESSURE INCREASED
     Route: 048
  2. COUMADIN [Concomitant]
  3. CARDURA [Concomitant]
  4. LASIX [Concomitant]
  5. POTASSIUM SUPPLEMENT [Concomitant]

REACTIONS (1)
  - BLOOD PRESSURE INCREASED [None]
